FAERS Safety Report 19714941 (Version 1)
Quarter: 2021Q3

REPORT INFORMATION
  Report Type: Report from Study
  Country: US (occurrence: US)
  Receive Date: 20210818
  Receipt Date: 20210818
  Transmission Date: 20211014
  Serious: Yes (Other)
  Sender: FDA-Public Use
  Company Number: US-BIOVITRUM-2021US7403

PATIENT
  Age: 71 Year
  Sex: Female

DRUGS (1)
  1. KINERET [Suspect]
     Active Substance: ANAKINRA
     Indication: SYSTEMIC LUPUS ERYTHEMATOSUS
     Dosage: TOOK EVERY TWO DAYS FOR SHORT TIME RELATED TO BEING ON ANTIBIOTIC.
     Route: 058
     Dates: start: 201904

REACTIONS (4)
  - Kidney infection [Unknown]
  - Off label use [Unknown]
  - Intentional product misuse [Unknown]
  - Cystitis [Unknown]

NARRATIVE: CASE EVENT DATE: 201904
